FAERS Safety Report 10012671 (Version 2)
Quarter: 2014Q1

REPORT INFORMATION
  Report Type: Spontaneous
  Country: PT (occurrence: PT)
  Receive Date: 20140314
  Receipt Date: 20140327
  Transmission Date: 20141002
  Serious: Yes (Disabling, Other)
  Sender: FDA-Public Use
  Company Number: PHHY2014PT030527

PATIENT
  Sex: 0

DRUGS (1)
  1. GILENYA [Suspect]
     Dosage: UNK
     Route: 048
     Dates: start: 20120614

REACTIONS (7)
  - Intracranial aneurysm [Unknown]
  - Multiple sclerosis relapse [Recovered/Resolved with Sequelae]
  - Central nervous system lesion [Not Recovered/Not Resolved]
  - Balance disorder [Unknown]
  - Muscle spasticity [Recovered/Resolved with Sequelae]
  - Asthenia [Unknown]
  - Ataxia [Recovered/Resolved with Sequelae]
